FAERS Safety Report 5794569-2 (Version None)
Quarter: 2008Q2

REPORT INFORMATION
  Report Type: 
  Country: None (occurrence: None)
  Receive Date: 20080626
  Receipt Date: 20080618
  Transmission Date: 20081010
  Serious: Yes (Death)
  Sender: FDA-Public Use
  Company Number: MSTR-NO-0806S-0029

PATIENT
  Age: 62 Year
  Sex: Male
  Weight: 42 kg

DRUGS (3)
  1. METASTRON [Suspect]
     Indication: METASTATIC PAIN
     Dosage: 2.2 ML, SINGLE DOSE, I.V.
     Route: 042
     Dates: start: 20080319, end: 20080319
  2. OXYCODONE HCL [Concomitant]
  3. LOXOPROFEN SODIUM [Concomitant]

REACTIONS (2)
  - CONDITION AGGRAVATED [None]
  - LUNG NEOPLASM MALIGNANT [None]
